FAERS Safety Report 11202562 (Version 2)
Quarter: 2015Q3

REPORT INFORMATION
  Report Type: Spontaneous
  Country: US (occurrence: US)
  Receive Date: 20150619
  Receipt Date: 20150717
  Transmission Date: 20151125
  Serious: Yes (Other)
  Sender: FDA-Public Use
  Company Number: US-BAYER-2015-359013

PATIENT
  Age: 38 Year
  Sex: Female
  Weight: 75.74 kg

DRUGS (2)
  1. MIRENA [Suspect]
     Active Substance: LEVONORGESTREL
     Indication: ANAEMIA
  2. MIRENA [Suspect]
     Active Substance: LEVONORGESTREL
     Indication: MENORRHAGIA
     Dosage: 20 MCG/24HR, CONT
     Route: 015
     Dates: start: 20150129, end: 20150605

REACTIONS (8)
  - Abdominal pain lower [None]
  - Escherichia test positive [None]
  - Staphylococcus test positive [None]
  - Device expulsion [None]
  - Vaginal haemorrhage [None]
  - Enterococcus test positive [None]
  - Embedded device [None]
  - Amenorrhoea [None]

NARRATIVE: CASE EVENT DATE: 20150605
